FAERS Safety Report 6339340-8 (Version None)
Quarter: 2009Q3

REPORT INFORMATION
  Report Type: 
  Country: None (occurrence: None)
  Receive Date: 20090903
  Receipt Date: 20090826
  Transmission Date: 20100115
  Serious: Yes (Other)
  Sender: FDA-Public Use
  Company Number: B0590579A

PATIENT
  Sex: Female

DRUGS (3)
  1. TYKERB [Suspect]
     Indication: BREAST CANCER
     Dosage: 1250MG PER DAY
     Route: 048
     Dates: start: 20090802
  2. XELODA [Suspect]
     Indication: DRUG USE FOR UNKNOWN INDICATION
     Dosage: 1000MGM2 TWICE PER DAY
     Route: 048
     Dates: start: 20090802, end: 20090817
  3. XELODA [Suspect]
     Route: 048
     Dates: start: 20090826

REACTIONS (1)
  - WHITE BLOOD CELL COUNT DECREASED [None]
